FAERS Safety Report 6925690-0 (Version None)
Quarter: 2010Q3

REPORT INFORMATION
  Report Type: 
  Country: None (occurrence: None)
  Receive Date: 20100816
  Receipt Date: 20100812
  Transmission Date: 20110219
  Serious: Yes (Other)
  Sender: FDA-Public Use
  Company Number: A0871799A

PATIENT
  Sex: Female

DRUGS (3)
  1. FLOVENT [Suspect]
     Indication: ASTHMA
     Route: 065
  2. VENTOLIN [Suspect]
     Indication: ASTHMA
     Dosage: 2ACTU AS REQUIRED
     Route: 055
     Dates: start: 20100708
  3. ADVAIR DISKUS 100/50 [Suspect]
     Indication: ASTHMA
     Dosage: 500MCG TWICE PER DAY
     Route: 055
     Dates: start: 20100708, end: 20100715

REACTIONS (6)
  - ASTHMA [None]
  - DIZZINESS [None]
  - HEART RATE INCREASED [None]
  - NAUSEA [None]
  - SECRETION DISCHARGE [None]
  - TREMOR [None]
